FAERS Safety Report 4874785-4 (Version None)
Quarter: 2006Q1

REPORT INFORMATION
  Report Type: 
  Country: None (occurrence: None)
  Receive Date: 20060104
  Receipt Date: 20051220
  Transmission Date: 20060701
  Serious: Yes (Hospitalization)
  Sender: FDA-Public Use
  Company Number: 2005164671

PATIENT
  Age: 73 Year
  Sex: Female
  Weight: 102 kg

DRUGS (9)
  1. NEURONTIN [Suspect]
     Indication: DIABETIC NEUROPATHY
     Dosage: 1800 MG (UNKNOWN); ORAL
     Route: 048
     Dates: end: 20051026
  2. NORVASC [Concomitant]
  3. TOREM (TORASEMIDE) [Concomitant]
  4. ASPIRIN [Concomitant]
  5. INSULIN [Concomitant]
  6. LEVOTHYROXINE SODIUM [Concomitant]
  7. CEDUR (BEZAFIBRATE) [Concomitant]
  8. DISTRANEURIN (CLOMETHIAZOLE EDISILATE) [Concomitant]
  9. LISINOPRIL [Concomitant]

REACTIONS (8)
  - ACUTE CORONARY SYNDROME [None]
  - CARDIAC FAILURE [None]
  - CONFUSIONAL STATE [None]
  - ENCEPHALOPATHY [None]
  - HYPERCAPNIA [None]
  - INTENTIONAL OVERDOSE [None]
  - PICKWICKIAN SYNDROME [None]
  - RESPIRATORY FAILURE [None]
